FAERS Safety Report 6596770-7 (Version None)
Quarter: 2010Q1

REPORT INFORMATION
  Report Type: 
  Country: None (occurrence: None)
  Receive Date: 20100212
  Receipt Date: 20100126
  Transmission Date: 20100710
  Serious: Yes (Other)
  Sender: FDA-Public Use
  Company Number: AUR-APL-2010-00364

PATIENT
  Age: 43 Year
  Sex: Female

DRUGS (3)
  1. CITALOPRAM HYDROBROMIDE [Suspect]
     Dosage: 10-20MG, QHS, ORAL
     Route: 048
     Dates: start: 20070406
  2. ABILIFY [Suspect]
     Indication: SCHIZOPHRENIA
     Dosage: 20-30MG, QHS, ORAL
     Route: 048
  3. COGENTIN [Suspect]
     Indication: SALIVARY HYPERSECRETION
     Dosage: 0.5MG - BID - ORAL
     Route: 048
     Dates: start: 20080807

REACTIONS (11)
  - APATHY [None]
  - CONDITION AGGRAVATED [None]
  - DELUSION [None]
  - FATIGUE [None]
  - HALLUCINATION [None]
  - HALLUCINATION, VISUAL [None]
  - IRRITABILITY [None]
  - MEMORY IMPAIRMENT [None]
  - SALIVARY HYPERSECRETION [None]
  - SOMNOLENCE [None]
  - TREATMENT NONCOMPLIANCE [None]
